FAERS Safety Report 12803624 (Version 1)
Quarter: 2016Q4

REPORT INFORMATION
  Report Type: Spontaneous
  Country: US (occurrence: US)
  Receive Date: 20161003
  Receipt Date: 20161003
  Transmission Date: 20170207
  Serious: No
  Sender: FDA-Public Use
  Company Number: US-PFIZER INC-2016457508

PATIENT
  Age: 56 Year
  Sex: Female
  Weight: 89.36 kg

DRUGS (3)
  1. TOPAMAX [Interacting]
     Active Substance: TOPIRAMATE
     Indication: HEADACHE
     Dosage: UNK
  2. TOPAMAX [Interacting]
     Active Substance: TOPIRAMATE
     Indication: MIGRAINE
  3. LYRICA [Suspect]
     Active Substance: PREGABALIN
     Dosage: UNK

REACTIONS (1)
  - Drug interaction [Unknown]
